FAERS Safety Report 7847119-0 (Version None)
Quarter: 2011Q4

REPORT INFORMATION
  Report Type: 
  Country: None (occurrence: None)
  Receive Date: 20111025
  Receipt Date: 20110610
  Transmission Date: 20120403
  Serious: No
  Sender: FDA-Public Use
  Company Number: US-ALLERGAN-1107928US

PATIENT
  Age: 72 Year
  Sex: Female

DRUGS (1)
  1. BLEPHAMIDE [Suspect]
     Indication: CONJUNCTIVITIS INFECTIVE
     Dosage: 4 GTT, QID
     Route: 047
     Dates: start: 20110606, end: 20110608

REACTIONS (2)
  - DRUG INEFFECTIVE [None]
  - EYE DISCHARGE [None]
